FAERS Safety Report 4579821-0 (Version None)
Quarter: 2005Q1

REPORT INFORMATION
  Report Type: 
  Country: None (occurrence: None)
  Receive Date: 20050210
  Receipt Date: 20041103
  Transmission Date: 20050727
  Serious: Yes (Other)
  Sender: FDA-Public Use
  Company Number: 2004239913DK

PATIENT
  Sex: Female

DRUGS (3)
  1. CELEBRA (CELECOXIB) [Suspect]
     Indication: PAIN
     Dosage: 400 MG (200 MG, 2 IN 1 D), ORAL
     Route: 048
     Dates: start: 20030101, end: 20040101
  2. MORPHINE SULFATE [Suspect]
     Indication: ILL-DEFINED DISORDER
     Dates: start: 20031204, end: 20040801
  3. ACETAMINOPHEN [Concomitant]

REACTIONS (6)
  - ABORTION SPONTANEOUS [None]
  - DRUG EXPOSURE DURING PREGNANCY [None]
  - HEADACHE [None]
  - MUSCULOSKELETAL STIFFNESS [None]
  - PREGNANCY [None]
  - ROAD TRAFFIC ACCIDENT [None]
